FAERS Safety Report 9572650 (Version 1)
Quarter: 2013Q4

REPORT INFORMATION
  Report Type: Spontaneous
  Country: US (occurrence: US)
  Receive Date: 20131001
  Receipt Date: 20131001
  Transmission Date: 20140711
  Serious: Yes (Other)
  Sender: FDA-Public Use
  Company Number: US-TEVA-434626USA

PATIENT
  Age: 55 Year
  Sex: Female
  Weight: 97.61 kg

DRUGS (12)
  1. PROAIR HFA [Suspect]
     Indication: CHRONIC OBSTRUCTIVE PULMONARY DISEASE
     Dates: start: 201309
  2. DILTIAZEM [Interacting]
     Indication: HYPERTENSION
     Dosage: 120 MILLIGRAM DAILY;
     Route: 048
     Dates: start: 2013
  3. SIMVASTATIN [Interacting]
     Indication: BLOOD CHOLESTEROL INCREASED
     Dosage: 20 MILLIGRAM DAILY;
     Dates: start: 2013
  4. PAROXETINE [Interacting]
     Dosage: 40 MILLIGRAM DAILY;
  5. CARBAMAZEPINE [Interacting]
     Dosage: 400 MILLIGRAM DAILY;
  6. RISPERIDONE [Interacting]
     Dosage: 1 MILLIGRAM DAILY;
  7. CHANTIX [Interacting]
     Indication: SMOKING CESSATION THERAPY
     Dates: end: 201309
  8. CHANTIX [Interacting]
     Route: 048
     Dates: start: 201309
  9. SYMBICORT [Interacting]
     Indication: CHRONIC OBSTRUCTIVE PULMONARY DISEASE
     Dates: start: 201309
  10. ATROVENT [Interacting]
     Indication: CHRONIC OBSTRUCTIVE PULMONARY DISEASE
     Dates: start: 201309
  11. LORAZEPAM [Interacting]
     Dosage: 1 MILLIGRAM DAILY;
  12. LEVOTHYROXINE [Interacting]
     Dosage: 150 MICROGRAM DAILY;

REACTIONS (5)
  - Blood cholesterol increased [Unknown]
  - Hypertension [Unknown]
  - Chronic obstructive pulmonary disease [Unknown]
  - Drug interaction [Unknown]
  - Drug effect decreased [Unknown]
